FAERS Safety Report 16395064 (Version 1)
Quarter: 2019Q2

REPORT INFORMATION
  Report Type: Report from Study
  Country: GB (occurrence: GB)
  Receive Date: 20190605
  Receipt Date: 20190605
  Transmission Date: 20190711
  Serious: Yes (Disabling)
  Sender: FDA-Public Use
  Company Number: PHHY2019GB126255

PATIENT
  Age: 73 Year
  Sex: Male
  Weight: 93 kg

DRUGS (1)
  1. ENTRESTO [Suspect]
     Active Substance: SACUBITRIL\VALSARTAN
     Indication: CARDIAC FAILURE
     Dosage: 1 DF, BID
     Route: 048
     Dates: start: 20190502, end: 20190527

REACTIONS (5)
  - Joint swelling [Recovering/Resolving]
  - Blister rupture [Recovering/Resolving]
  - Rash [Recovering/Resolving]
  - Mobility decreased [Recovering/Resolving]
  - Pain in extremity [Recovering/Resolving]

NARRATIVE: CASE EVENT DATE: 20190519
